FAERS Safety Report 24307029 (Version 1)
Quarter: 2024Q3

REPORT INFORMATION
  Report Type: Spontaneous
  Country: CN (occurrence: CN)
  Receive Date: 20240911
  Receipt Date: 20240911
  Transmission Date: 20241016
  Serious: Yes (Hospitalization)
  Sender: BEIGENE
  Company Number: CN-BEIGENE-BGN-2024-014017

PATIENT

DRUGS (7)
  1. TISLELIZUMAB [Suspect]
     Active Substance: TISLELIZUMAB
     Indication: Hepatic cancer stage IV
     Dosage: 200 MILLIGRAM ONCE
     Route: 041
     Dates: start: 20240613
  2. TISLELIZUMAB [Suspect]
     Active Substance: TISLELIZUMAB
     Indication: Metastases to lung
     Dosage: 200 MILLIGRAM ONCE
     Route: 041
     Dates: start: 20240707, end: 20240819
  3. TISLELIZUMAB [Suspect]
     Active Substance: TISLELIZUMAB
     Indication: Metastases to lymph nodes
  4. ENTECAVIR [Concomitant]
     Active Substance: ENTECAVIR
     Indication: Antiviral treatment
  5. LENVATINIB [Concomitant]
     Active Substance: LENVATINIB
     Indication: Hepatic cancer stage IV
     Dosage: 8 MILLIGRAM DAILY
     Route: 048
     Dates: start: 20240522
  6. LENVATINIB [Concomitant]
     Active Substance: LENVATINIB
     Indication: Metastases to lung
  7. LENVATINIB [Concomitant]
     Active Substance: LENVATINIB
     Indication: Metastases to lymph nodes

REACTIONS (1)
  - Liver injury [Recovering/Resolving]

NARRATIVE: CASE EVENT DATE: 20240819
